FAERS Safety Report 25052924 (Version 1)
Quarter: 2025Q1

REPORT INFORMATION
  Report Type: Spontaneous
  Country: US (occurrence: US)
  Receive Date: 20250307
  Receipt Date: 20250307
  Transmission Date: 20250409
  Serious: No
  Sender: SANOFI AVENTIS
  Company Number: US-SA-2025SA065025

PATIENT
  Sex: Female

DRUGS (21)
  1. AUBAGIO [Suspect]
     Active Substance: TERIFLUNOMIDE
     Indication: Urinary tract infection
  2. ALENDRONATE SODIUM [Concomitant]
     Active Substance: ALENDRONATE SODIUM
  3. ATENOLOL [Concomitant]
     Active Substance: ATENOLOL
  4. ATORVASTATIN [Concomitant]
     Active Substance: ATORVASTATIN
  5. B12 [Concomitant]
  6. DILANTIN [Concomitant]
     Active Substance: PHENYTOIN
  7. ESTRADIOL [Concomitant]
     Active Substance: ESTRADIOL
  8. FOLIC ACID [Concomitant]
     Active Substance: FOLIC ACID
  9. HYDROXYCHLOROQUINE [Concomitant]
     Active Substance: HYDROXYCHLOROQUINE
  10. IRON [Concomitant]
     Active Substance: IRON
  11. LEVETIRACETAM [Concomitant]
     Active Substance: LEVETIRACETAM
  12. LEVOTHYROXINE [Concomitant]
     Active Substance: LEVOTHYROXINE
  13. LEXAPRO [Concomitant]
     Active Substance: ESCITALOPRAM OXALATE
  14. LINZESS [Concomitant]
     Active Substance: LINACLOTIDE
  15. VITAMINS [Concomitant]
     Active Substance: VITAMINS
  16. NITROFURANTOIN [Concomitant]
     Active Substance: NITROFURANTOIN
  17. NORTRIPTYLINE [Concomitant]
     Active Substance: NORTRIPTYLINE
  18. OMEPRAZOLE [Concomitant]
     Active Substance: OMEPRAZOLE
  19. REMERON [Concomitant]
     Active Substance: MIRTAZAPINE
  20. RIZATRIPTAN [Concomitant]
     Active Substance: RIZATRIPTAN
  21. SULFASALAZINE [Concomitant]
     Active Substance: SULFASALAZINE

REACTIONS (1)
  - Product use in unapproved indication [Unknown]
